FAERS Safety Report 8917031 (Version 1)
Quarter: 2012Q4

REPORT INFORMATION
  Report Type: 
  Country: BE (occurrence: BE)
  Receive Date: 20121120
  Receipt Date: 20121120
  Transmission Date: 20130627
  Serious: Yes (Other)
  Sender: FDA-Public Use
  Company Number: BE-ASTRAZENECA-2012SE86423

PATIENT
  Age: 10957 Day
  Sex: Male

DRUGS (1)
  1. NAROPIN [Suspect]
     Indication: HAEMORRHOID OPERATION
     Dosage: SUBCUTANEOUS OR PERIANAL 0.75  5 A 7 ml
     Dates: start: 2012

REACTIONS (2)
  - Erectile dysfunction [Unknown]
  - Off label use [Unknown]
